FAERS Safety Report 8810350 (Version 1)
Quarter: 2012Q4

REPORT INFORMATION
  Report Type: 
  Country: US (occurrence: US)
  Receive Date: 20120926
  Receipt Date: 20120926
  Transmission Date: 20130627
  Serious: Yes (Hospitalization, Other)
  Sender: FDA-Public Use
  Company Number: US-009507513-1209USA009049

PATIENT
  Sex: Male

DRUGS (1)
  1. INTEGRILIN [Suspect]
     Route: 042

REACTIONS (2)
  - Haemorrhage [Recovered/Resolved]
  - Coronary artery bypass [Recovered/Resolved]
